FAERS Safety Report 5825592-7 (Version None)
Quarter: 2008Q3

REPORT INFORMATION
  Report Type: 
  Country: None (occurrence: None)
  Receive Date: 20080729
  Receipt Date: 20080721
  Transmission Date: 20090109
  Serious: Yes (Other)
  Sender: FDA-Public Use
  Company Number: A0731151A

PATIENT
  Age: 78 Year
  Sex: Male
  Weight: 90.9 kg

DRUGS (12)
  1. VERAMYST [Suspect]
     Indication: COUGH
     Dosage: 1SPR PER DAY
     Route: 045
     Dates: start: 20080401, end: 20080501
  2. ASPIRIN [Concomitant]
     Route: 048
  3. PLAVIX [Concomitant]
     Route: 048
  4. CATAPRES [Concomitant]
     Dosage: .1MG TWICE PER DAY
     Route: 048
  5. TOPROL-XL [Concomitant]
     Dosage: 25MG PER DAY
     Route: 048
  6. NORVASC [Concomitant]
     Dosage: 5MG PER DAY
     Route: 048
  7. NEXIUM [Concomitant]
     Dosage: 40MG PER DAY
     Route: 048
  8. ARTHROTEC [Concomitant]
     Route: 048
  9. LYRICA [Concomitant]
     Route: 048
  10. GLUCOSAMINE + CHONDROITIN [Concomitant]
     Route: 048
  11. FISH OIL [Concomitant]
     Route: 048
  12. METAMUCIL [Concomitant]
     Route: 048

REACTIONS (3)
  - ANAEMIA [None]
  - DRUG INEFFECTIVE [None]
  - EPISTAXIS [None]
